FAERS Safety Report 4399305-2 (Version None)
Quarter: 2004Q3

REPORT INFORMATION
  Report Type: 
  Country: None (occurrence: None)
  Receive Date: 20040712
  Receipt Date: 20040224
  Transmission Date: 20050211
  Serious: Yes (Life-Threatening, Hospitalization, Other)
  Sender: FDA-Public Use
  Company Number: BE 2004 0001

PATIENT
  Age: 74 Year
  Sex: Male

DRUGS (1)
  1. DOTAREM(MEGLUMINE GADOTERATE) [Suspect]
     Indication: ANGIOGRAM
     Dosage: 40 ML PER DAY
     Route: 042
     Dates: start: 20040224, end: 20040224

REACTIONS (6)
  - ANAPHYLACTIC SHOCK [None]
  - CHEST PAIN [None]
  - DIZZINESS [None]
  - ERYTHEMA [None]
  - HYPOTENSION [None]
  - LOSS OF CONSCIOUSNESS [None]
